FAERS Safety Report 5517505-2 (Version None)
Quarter: 2007Q4

REPORT INFORMATION
  Report Type: 
  Country: None (occurrence: None)
  Receive Date: 20071114
  Receipt Date: 20071102
  Transmission Date: 20080405
  Serious: Yes (Hospitalization, Other)
  Sender: FDA-Public Use
  Company Number: US-PFIZER INC-2007076866

PATIENT
  Sex: Female

DRUGS (2)
  1. CHANTIX [Suspect]
     Indication: SMOKING CESSATION THERAPY
  2. ALBUTEROL [Interacting]
     Indication: ASTHMA
     Dosage: TEXT:2 PUFFS EVERY 4 TO 6 HOURS AS NEEDED
     Route: 055

REACTIONS (5)
  - CARDIAC DISORDER [None]
  - DRUG INTERACTION [None]
  - HYPERSENSITIVITY [None]
  - KIDNEY INFECTION [None]
  - URINARY TRACT INFECTION [None]
